FAERS Safety Report 22189814 (Version 1)
Quarter: 2023Q2

REPORT INFORMATION
  Report Type: Spontaneous
  Country: ES (occurrence: ES)
  Receive Date: 20230410
  Receipt Date: 20230410
  Transmission Date: 20230722
  Serious: Yes (Life-Threatening, Other)
  Sender: FDA-Public Use
  Company Number: None

PATIENT
  Age: 72 Year
  Sex: Male
  Weight: 81 kg

DRUGS (3)
  1. GEMCITABINE [Suspect]
     Active Substance: GEMCITABINE
     Indication: Lung adenocarcinoma
     Dosage: 1400 MG/M2: 2 DOSIS TOTALES (CADA UNA 2877 MG)
     Route: 042
     Dates: start: 20230202, end: 20230216
  2. ONDANSETRON [Concomitant]
     Active Substance: ONDANSETRON
     Indication: Product used for unknown indication
     Dosage: 8 MG DOSIS UNICA (2 ADMINISTRACIONES)
     Route: 042
     Dates: start: 20230202, end: 20230216
  3. DEXAMETHASONE [Concomitant]
     Active Substance: DEXAMETHASONE
     Indication: Product used for unknown indication
     Dosage: 8 MG DOSIS UNICA (2 ADMINISTRACIONES)
     Route: 042
     Dates: start: 20230202, end: 20230216

REACTIONS (3)
  - Agranulocytosis [Recovered/Resolved]
  - Anaemia [Recovered/Resolved]
  - Pneumonia moraxella [Recovered/Resolved]

NARRATIVE: CASE EVENT DATE: 20230219
